FAERS Safety Report 8421190-X (Version None)
Quarter: 2012Q2

REPORT INFORMATION
  Report Type: 
  Country: None (occurrence: None)
  Receive Date: 20120608
  Receipt Date: 20120601
  Transmission Date: 20120825
  Serious: Yes (Other)
  Sender: FDA-Public Use
  Company Number: US-JNJFOC-20120601193

PATIENT
  Age: 70 Year
  Sex: Female

DRUGS (5)
  1. PLAVIX [Concomitant]
     Route: 065
  2. MORPHINE [Concomitant]
     Route: 065
  3. REOPRO [Suspect]
     Indication: STENT PLACEMENT
     Dosage: 11.8 BOLUS AND THE IV 3.6 CC BY 250 WITH A 21 CC PER HOUR DRIP
     Route: 042
     Dates: start: 20120531
  4. ASPIRIN [Concomitant]
     Indication: CHEST PAIN
     Route: 065
  5. ANGIOMAX [Concomitant]
     Indication: CHEST PAIN
     Route: 042

REACTIONS (1)
  - GINGIVAL BLEEDING [None]
